FAERS Safety Report 25187011 (Version 1)
Quarter: 2025Q2

REPORT INFORMATION
  Report Type: Other
  Country: PT (occurrence: PT)
  Receive Date: 20250411
  Receipt Date: 20250411
  Transmission Date: 20250717
  Serious: Yes (Hospitalization)
  Sender: ALVOGEN
  Company Number: PT-ALVOGEN-2025097689

PATIENT
  Age: 75 Year
  Sex: Male

DRUGS (1)
  1. VENLAFAXINE [Suspect]
     Active Substance: VENLAFAXINE HYDROCHLORIDE
     Indication: Generalised anxiety disorder

REACTIONS (3)
  - Eosinophilic pleural effusion [Recovered/Resolved]
  - Eosinophilia [Recovered/Resolved]
  - Drug hypersensitivity [Recovered/Resolved]
